FAERS Safety Report 7197937-X (Version None)
Quarter: 2010Q4

REPORT INFORMATION
  Report Type: 
  Country: None (occurrence: None)
  Receive Date: 20101227
  Receipt Date: 20101222
  Transmission Date: 20110411
  Serious: Yes (Hospitalization)
  Sender: FDA-Public Use
  Company Number: IT-ROCHE-744025

PATIENT
  Sex: Male

DRUGS (1)
  1. RIVOTRIL [Suspect]
     Indication: EPILEPSY
     Dosage: FREQUENCY: DAILY
     Route: 048
     Dates: start: 20100101, end: 20101119

REACTIONS (1)
  - FACE OEDEMA [None]
